FAERS Safety Report 23406656 (Version 7)
Quarter: 2024Q1

REPORT INFORMATION
  Report Type: Report from Study
  Country: CO (occurrence: CO)
  Receive Date: 20240116
  Receipt Date: 20240203
  Transmission Date: 20240410
  Serious: Yes (Death, Life-Threatening, Hospitalization, Other)
  Sender: FDA-Public Use
  Company Number: CO-ABBVIE-5587887

PATIENT
  Age: 76 Year
  Sex: Male

DRUGS (33)
  1. VENETOCLAX [Suspect]
     Active Substance: VENETOCLAX
     Indication: Acute myeloid leukaemia
     Dosage: FORM STRENGTH: 100 MILLIGRAM
     Route: 048
     Dates: start: 20231220, end: 20240117
  2. INSULIN GLARGINE [Concomitant]
     Active Substance: INSULIN GLARGINE
     Indication: Diabetes mellitus
     Dosage: FORM STRENGTH: 100 IU (INTERNATIONAL UNIT)
     Dates: start: 20231230, end: 20231231
  3. INSULIN GLARGINE [Concomitant]
     Active Substance: INSULIN GLARGINE
     Indication: Diabetes mellitus
     Dosage: FORM STRENGTH: 100  IU (INTERNATIONAL UNIT)
     Dates: start: 20240101, end: 20240102
  4. INSULIN GLARGINE [Concomitant]
     Active Substance: INSULIN GLARGINE
     Indication: Diabetes mellitus
     Dosage: FORM STRENGTH: 100  IU (INTERNATIONAL UNIT)
     Dates: start: 20240103, end: 20240116
  5. ROSUVASTATIN [Concomitant]
     Active Substance: ROSUVASTATIN
     Indication: Coronary artery disease
     Dates: start: 20230116, end: 20230126
  6. ROSUVASTATIN [Concomitant]
     Active Substance: ROSUVASTATIN
     Indication: Coronary artery disease
     Dosage: FORM STRENGTH: 10 MILLIGRAM
     Dates: start: 20231226, end: 20240110
  7. MIRTAZAPINE [Concomitant]
     Active Substance: MIRTAZAPINE
     Indication: Mood altered
     Dosage: FORM STRENGTH: 30 MILLIGRAM
     Dates: start: 20240107, end: 20240116
  8. INSULIN HUMAN [Concomitant]
     Active Substance: INSULIN HUMAN
     Indication: Diabetes mellitus
     Dosage: FORM STRENGTH: 10 IU (INTERNATIONAL UNIT) SINGLE DOSE
     Dates: start: 20240117, end: 20240117
  9. TRAZODONE [Concomitant]
     Active Substance: TRAZODONE HYDROCHLORIDE
     Indication: Mood altered
     Dosage: FORM STRENGTH: 50 MILLIGRAM
     Dates: start: 20231226, end: 20240104
  10. FUROSEMIDE [Concomitant]
     Active Substance: FUROSEMIDE
     Indication: Cardiac failure
     Dosage: FORM STRENGTH: 40 MILLIGRAM
     Dates: start: 20240103, end: 20240105
  11. FUROSEMIDE [Concomitant]
     Active Substance: FUROSEMIDE
     Indication: Cardiac failure
     Dosage: FORM STRENGTH: 20 MILLIGRAM
     Dates: start: 20240106, end: 20240117
  12. FUROSEMIDE [Concomitant]
     Active Substance: FUROSEMIDE
     Indication: Cardiac failure
     Dosage: FORM STRENGTH: 40 MILLIGRAM
     Dates: start: 20231227, end: 20231228
  13. SPIRONOLACTONE [Concomitant]
     Active Substance: SPIRONOLACTONE
     Indication: Cardiac failure
     Dosage: FORM STRENGTH: 25 MILLIGRAM
     Dates: start: 20231227, end: 20240115
  14. AMITRIPTYLINE [Concomitant]
     Active Substance: AMITRIPTYLINE
     Indication: Mood altered
     Dosage: FORM STRENGTH: 25 MILLIGRAM
     Dates: start: 20231228, end: 20231229
  15. SODIUM BICARBONATE [Concomitant]
     Active Substance: SODIUM BICARBONATE
     Indication: Prophylaxis
     Dosage: FORM STRENGTH: 5 GRAM
     Dates: start: 20231226, end: 20231226
  16. TRIMETAZIDINE [Concomitant]
     Active Substance: TRIMETAZIDINE
     Indication: Angina pectoris
     Dosage: FORM STRENGTH: 35 MILLIGRAM?START DATE TEXT: 2
     Dates: start: 20231226, end: 20231229
  17. ENOXAPARIN [Concomitant]
     Active Substance: ENOXAPARIN
     Indication: Atrial fibrillation
     Dosage: FORM STRENGTH: 60 MILLIGRAM
     Dates: start: 20231228, end: 20240117
  18. ENOXAPARIN [Concomitant]
     Active Substance: ENOXAPARIN
     Indication: Atrial fibrillation
     Dosage: FORM STRENGTH: 60 MILLIGRAM?LAST ADMIN DATE: DEC 2023
     Dates: start: 20231226
  19. QUETIAPINE [Concomitant]
     Active Substance: QUETIAPINE
     Indication: Mood altered
     Dosage: FORM STRENGTH: 25 MILLIGRAM
     Dates: start: 20240101, end: 20240106
  20. QUETIAPINE [Concomitant]
     Active Substance: QUETIAPINE
     Indication: Mood altered
     Dosage: FORM STRENGTH: 25 MG
     Dates: start: 20240107, end: 20240118
  21. ACYCLOVIR [Concomitant]
     Active Substance: ACYCLOVIR
     Indication: Antiviral prophylaxis
     Dosage: FORM STRENGTH: 200 MG
     Dates: start: 20231227, end: 20240117
  22. VALSARTAN [Concomitant]
     Active Substance: VALSARTAN
     Indication: Hypertension
     Dosage: FORM STRENGTH: 80 MILLIGRAM, START DATE TEXT: 2
     Dates: start: 20231227, end: 20231228
  23. ASPIRIN [Concomitant]
     Active Substance: ASPIRIN
     Indication: Acute myocardial infarction
     Dosage: FORM STRENGTH: 100 MG
     Dates: start: 20231228, end: 20231228
  24. ASPIRIN [Concomitant]
     Active Substance: ASPIRIN
     Indication: Acute myocardial infarction
     Dosage: FORM STRENGTH: 100 MG ; FREQUENCY TEXT: SINGLE DOSE
     Dates: start: 20240104, end: 20240117
  25. BISOPROLOL FUMARATE [Concomitant]
     Active Substance: BISOPROLOL FUMARATE
     Indication: Cardiac failure
     Dosage: FORM STRENGTH: 5 MILLIGRAM
     Dates: start: 20231226, end: 20240102
  26. NITROGLYCERIN [Concomitant]
     Active Substance: NITROGLYCERIN
     Indication: Coronary artery disease
     Dosage: FORM STRENGTH: 50 MG
     Dates: start: 20240103
  27. CLOPIDOGREL [Concomitant]
     Active Substance: CLOPIDOGREL BISULFATE
     Indication: Acute myocardial infarction
     Dosage: FORM STRENGTH: 75 MG, FREQUENCY TEXT: SINGLE DOSE
     Dates: start: 20240103, end: 20240103
  28. CLOPIDOGREL [Concomitant]
     Active Substance: CLOPIDOGREL BISULFATE
     Indication: Acute myocardial infarction
     Dosage: FORM STRENGTH: 75 MILLIGRAM?LAST ADMIN DATE: DEC 2023
     Dates: start: 20231226
  29. CLOPIDOGREL [Concomitant]
     Active Substance: CLOPIDOGREL BISULFATE
     Indication: Acute myocardial infarction
     Dosage: FORM STRENGTH: 75 MG, FREQUENCY TEXT: SINGLE DOSE
     Dates: start: 20231228, end: 20231228
  30. ISOSORBIDE DINITRATE [Concomitant]
     Active Substance: ISOSORBIDE DINITRATE
     Indication: Angina pectoris
     Dosage: FORM STRENGTH: 5 MG
     Dates: start: 20231226, end: 20231227
  31. INSULIN GLULISINE [Concomitant]
     Active Substance: INSULIN GLULISINE
     Indication: Diabetes mellitus
     Dosage: FORM STRENGTH: 1000 IU (INTERNATIONAL UNIT)
     Dates: start: 20231230, end: 20231231
  32. INSULIN GLULISINE [Concomitant]
     Active Substance: INSULIN GLULISINE
     Indication: Diabetes mellitus
     Dosage: FORM STRENGTH: 1000 IU (INTERNATIONAL UNIT)
     Dates: start: 20231231, end: 20240114
  33. AZACITIDINE [Suspect]
     Active Substance: AZACITIDINE
     Indication: Acute myeloid leukaemia
     Dosage: FORM STRENGTH: 100 MILLIGRAM
     Route: 065
     Dates: start: 20231226

REACTIONS (23)
  - Haemodynamic instability [Fatal]
  - Acute myocardial infarction [Recovered/Resolved]
  - Pain in jaw [Recovering/Resolving]
  - Renal failure [Not Recovered/Not Resolved]
  - Chest pain [Recovering/Resolving]
  - Cytotoxic oedema [Recovered/Resolved]
  - Blood creatinine increased [Recovering/Resolving]
  - Blood urea increased [Recovering/Resolving]
  - Cardiogenic shock [Recovered/Resolved]
  - Subarachnoid haemorrhage [Recovered/Resolved]
  - Depressed level of consciousness [Recovered/Resolved]
  - Cardio-respiratory arrest [Fatal]
  - Hypotension [Recovered/Resolved]
  - Unevaluable event [Recovered/Resolved]
  - Somnolence [Recovered/Resolved]
  - Pyrexia [Recovered/Resolved]
  - Urosepsis [Not Recovered/Not Resolved]
  - Electrocardiogram abnormal [Recovering/Resolving]
  - Pyrexia [Fatal]
  - Renal failure [Fatal]
  - Metabolic acidosis [Fatal]
  - Respiratory disorder [Fatal]
  - Septic shock [Fatal]

NARRATIVE: CASE EVENT DATE: 20231221
